FAERS Safety Report 4986773-8 (Version None)
Quarter: 2006Q2

REPORT INFORMATION
  Report Type: 
  Country: None (occurrence: None)
  Receive Date: 20060428
  Receipt Date: 20060418
  Transmission Date: 20061013
  Serious: Yes (Death, Hospitalization, Other)
  Sender: FDA-Public Use
  Company Number: US-MERCK-0604USA03209

PATIENT
  Age: 84 Year
  Sex: Female
  Weight: 64 kg

DRUGS (23)
  1. VIOXX [Suspect]
     Indication: ARTHRITIS
     Route: 048
     Dates: start: 20030101, end: 20040204
  2. LASIX [Concomitant]
     Route: 065
  3. LISINOPRIL [Concomitant]
     Route: 065
  4. GLUCOPHAGE [Concomitant]
     Route: 065
  5. PRINIVIL [Concomitant]
     Route: 065
  6. IMDUR [Concomitant]
     Route: 065
  7. AVANDIA [Concomitant]
     Route: 065
  8. PLAVIX [Concomitant]
     Route: 065
  9. BACTRIM [Concomitant]
     Route: 065
  10. COLACE [Concomitant]
     Route: 065
  11. REGLAN [Concomitant]
     Route: 065
  12. VITAMINS (UNSPECIFIED) [Concomitant]
     Route: 065
  13. ISOSORBIDE [Concomitant]
     Route: 065
  14. ATENOLOL [Concomitant]
     Route: 065
  15. FUROSEMIDE [Concomitant]
     Route: 065
  16. ACETAMINOPHEN AND PROPOXYPHENE NAPSYLATE [Concomitant]
     Route: 065
  17. [THERAPY UNSPECIFIED] [Concomitant]
     Route: 065
  18. CALCIUM (UNSPECIFIED) AND VITAMIN D (UNSPECIFIED) [Concomitant]
     Route: 065
  19. POTASSIUM (UNSPECIFIED) [Concomitant]
     Route: 065
  20. CALCIUM CARBONATE [Concomitant]
     Route: 065
  21. RANITIDINE [Concomitant]
     Route: 065
  22. NORVASC [Concomitant]
     Route: 065
  23. METFORMIN [Concomitant]
     Route: 065

REACTIONS (6)
  - CARDIAC DISORDER [None]
  - CARDIAC FAILURE CONGESTIVE [None]
  - CEREBROVASCULAR ACCIDENT [None]
  - HAEMORRHAGIC STROKE [None]
  - HEART RATE IRREGULAR [None]
  - MYOCARDIAL INFARCTION [None]
